FAERS Safety Report 21625574 (Version 1)
Quarter: 2022Q4

REPORT INFORMATION
  Report Type: Spontaneous
  Country: US (occurrence: None)
  Receive Date: 20221122
  Receipt Date: 20221122
  Transmission Date: 20230113
  Serious: No
  Sender: FDA-Public Use
  Company Number: US-ROCHE-3023033

PATIENT
  Sex: Female

DRUGS (1)
  1. HERCEPTIN [Suspect]
     Active Substance: TRASTUZUMAB
     Indication: Osteitis deformans
     Route: 041
     Dates: start: 20210805, end: 20211017

REACTIONS (2)
  - Off label use [Unknown]
  - No adverse event [Unknown]
